FAERS Safety Report 9456827 (Version 2)
Quarter: 2014Q1

REPORT INFORMATION
  Report Type: Spontaneous
  Country: US (occurrence: US)
  Receive Date: 20130813
  Receipt Date: 20140124
  Transmission Date: 20141002
  Serious: Yes (Hospitalization)
  Sender: FDA-Public Use
  Company Number: US-B.I. PHARMACEUTICALS,INC./RIDGEFIELD-2013-BI-24028BP

PATIENT
  Sex: Male
  Weight: 90.72 kg

DRUGS (5)
  1. PRADAXA [Suspect]
     Indication: ATRIAL FIBRILLATION
     Dosage: 300 MG
     Route: 048
     Dates: start: 20120301, end: 20120307
  2. DILTIAZEM EXTENDED RELEASE [Concomitant]
     Dosage: 120 MG
  3. MULTAQ [Concomitant]
     Dosage: 800 MG
     Route: 048
  4. ISOSORBIDE DINITRATE [Concomitant]
     Route: 048
  5. LISINOPRIL [Concomitant]
     Dosage: 40 MG
     Route: 048

REACTIONS (3)
  - Gastrointestinal haemorrhage [Unknown]
  - Haemorrhagic anaemia [Unknown]
  - Coagulopathy [Unknown]
